FAERS Safety Report 8003426-2 (Version None)
Quarter: 2011Q4

REPORT INFORMATION
  Report Type: 
  Country: None (occurrence: None)
  Receive Date: 20111222
  Receipt Date: 20111213
  Transmission Date: 20120403
  Serious: Yes (Hospitalization)
  Sender: FDA-Public Use
  Company Number: ES-ASTRAZENECA-2011SE75422

PATIENT
  Age: 69 Year
  Sex: Male

DRUGS (6)
  1. ZOMARIST [Concomitant]
     Indication: DIABETES MELLITUS
     Dosage: 50/1000 MG, 1 DF DAILY
     Route: 048
     Dates: start: 20110901
  2. BISOPROLOL FUMARATE [Concomitant]
     Indication: HYPERTENSION
     Dates: start: 20091001
  3. OMEPRAZOLE [Concomitant]
     Indication: GASTRITIS
     Route: 048
     Dates: start: 20091001
  4. DOXAZOSINA ALTER [Concomitant]
     Indication: HYPERTENSION
     Route: 048
     Dates: start: 20090101
  5. DEPAKENE [Suspect]
     Indication: EPILEPSY
     Route: 048
     Dates: start: 20110901, end: 20111013
  6. ZESTORETIC [Suspect]
     Indication: HYPERTENSION
     Dosage: 20+12.5 MG DAILY
     Route: 048
     Dates: start: 20091001

REACTIONS (3)
  - HYPONATRAEMIA [None]
  - HYPERTRANSAMINASAEMIA [None]
  - PANCYTOPENIA [None]
